FAERS Safety Report 13953286 (Version 1)
Quarter: 2017Q3

REPORT INFORMATION
  Report Type: Spontaneous
  Country: US (occurrence: None)
  Receive Date: 20170908
  Receipt Date: 20170908
  Transmission Date: 20171128
  Serious: No
  Sender: FDA-Public Use
  Company Number: None

PATIENT
  Age: 43 Year
  Sex: Male

DRUGS (1)
  1. ADCIRCA [Suspect]
     Active Substance: TADALAFIL
     Dosage: 20MG TAB 2 TABS QD PO
     Route: 048

REACTIONS (2)
  - Manufacturing product shipping issue [None]
  - Incorrect dose administered [None]

NARRATIVE: CASE EVENT DATE: 20170905
